FAERS Safety Report 14968672 (Version 2)
Quarter: 2018Q2

REPORT INFORMATION
  Report Type: Spontaneous
  Country: US (occurrence: US)
  Receive Date: 20180604
  Receipt Date: 20180607
  Transmission Date: 20180711
  Serious: Yes (Disabling, Other)
  Sender: FDA-Public Use
  Company Number: US-PFIZER INC-2018224759

PATIENT
  Age: 72 Year
  Sex: Male

DRUGS (2)
  1. PHENYTOIN. [Suspect]
     Active Substance: PHENYTOIN
     Indication: SEIZURE
     Dosage: UNK
     Route: 048
     Dates: start: 1982, end: 201509
  2. DILANTIN-125 [Suspect]
     Active Substance: PHENYTOIN
     Indication: SEIZURE
     Dosage: UNK
     Route: 048
     Dates: start: 1982, end: 201509

REACTIONS (2)
  - Cerebellar ataxia [Not Recovered/Not Resolved]
  - Cerebellar atrophy [Not Recovered/Not Resolved]

NARRATIVE: CASE EVENT DATE: 201611
